FAERS Safety Report 10901171 (Version 1)
Quarter: 2015Q1

REPORT INFORMATION
  Report Type: Spontaneous
  Country: US (occurrence: None)
  Receive Date: 20150303
  Receipt Date: 20150303
  Transmission Date: 20150721
  Serious: Yes (Other)
  Sender: FDA-Public Use
  Company Number: 201502117

PATIENT
  Age: 50 Year
  Sex: Male

DRUGS (5)
  1. VITAMIN E [Concomitant]
     Active Substance: .ALPHA.-TOCOPHEROL
  2. XIAFLEX [Suspect]
     Active Substance: COLLAGENASE CLOSTRIDIUM HISTOLYTICUM
     Indication: PEYRONIE^S DISEASE
     Dosage: INTERLESIONAL
     Dates: start: 20150130
  3. FISH OIL [Concomitant]
     Active Substance: FISH OIL
  4. MULTIVITAMIN (ASCORBIC ACID, PYRIDOXINE HYDROCHLORIDE, BIOTIN, TOCOPHERYL ACETATE, FOLIC ACID, NICOTINIC ACID, THIAMINE HYDROCHLORIDE, CYANOCOBALAMIN, RIBOFLAVIN, CALCIUM PANTOTHENATE) [Concomitant]
  5. VITAMIN B (VITAMIN B COMPLEX) [Concomitant]

REACTIONS (4)
  - Fracture of penis [None]
  - Pain [None]
  - Ecchymosis [None]
  - Balanoposthitis [None]

NARRATIVE: CASE EVENT DATE: 20150131
